FAERS Safety Report 10239121 (Version 1)
Quarter: 2014Q2

REPORT INFORMATION
  Report Type: Other
  Country: US (occurrence: US)
  Receive Date: 20140616
  Receipt Date: 20140616
  Transmission Date: 20141212
  Serious: Yes (Death, Other)
  Sender: FDA-Public Use
  Company Number: US-ENDO PHARMACEUTICALS INC.-OPIR20140005

PATIENT
  Sex: Male

DRUGS (1)
  1. OPANA [Suspect]
     Indication: PAIN
     Dosage: UNK
     Route: 045
     Dates: start: 20120327, end: 20120327

REACTIONS (5)
  - Drug abuse [Fatal]
  - Death [Fatal]
  - Drug dependence [Fatal]
  - Wrong technique in drug usage process [Fatal]
  - Incorrect route of drug administration [Fatal]
